FAERS Safety Report 7172386-9 (Version None)
Quarter: 2010Q4

REPORT INFORMATION
  Report Type: 
  Country: None (occurrence: None)
  Receive Date: 20101217
  Receipt Date: 20100208
  Transmission Date: 20110411
  Serious: No
  Sender: FDA-Public Use
  Company Number: US-AMGEN-KDL391435

PATIENT

DRUGS (10)
  1. ENBREL [Suspect]
     Indication: PRODUCT USED FOR UNKNOWN INDICATION
     Dosage: 50 MG, QWK
     Route: 058
  2. HYDROXYCHLOROQUINE SULFATE [Concomitant]
     Dosage: 200 MG, UNK
     Route: 048
  3. LEVOTHYROXINE SODIUM [Concomitant]
     Dosage: 25 A?G, UNK
     Route: 048
  4. TRAMADOL HCL [Concomitant]
     Dosage: 50 MG, UNK
     Route: 048
  5. ATENOLOL [Concomitant]
     Dosage: 25 MG, UNK
     Route: 048
  6. LISINOPRIL [Concomitant]
     Dosage: 2.5 MG, UNK
     Route: 048
  7. OMEPRAZOLE [Concomitant]
     Dosage: 20 MG, UNK
     Route: 048
  8. FLUOXETINE HYDROCHLORIDE [Concomitant]
     Dosage: 20 MG, UNK
     Route: 048
  9. UNSPECIFIED VITAMINS [Concomitant]
     Dosage: 200 MG, UNK
     Route: 048
  10. CALCIUM WITH VITAMIN D [Concomitant]
     Dosage: UNK UNK, UNK
     Route: 048

REACTIONS (3)
  - RASH [None]
  - SKIN FISSURES [None]
  - SKIN INFECTION [None]
